FAERS Safety Report 20785072 (Version 1)
Quarter: 2022Q2

REPORT INFORMATION
  Report Type: Spontaneous
  Country: US (occurrence: None)
  Receive Date: 20220503
  Receipt Date: 20220503
  Transmission Date: 20220721
  Serious: Yes (Hospitalization, Other)
  Sender: FDA-Public Use
  Company Number: None

PATIENT
  Age: 42 Year
  Sex: Female

DRUGS (1)
  1. OSELTAMIVIR PHOSPHATE [Suspect]
     Active Substance: OSELTAMIVIR PHOSPHATE
     Dosage: FREQUENCY : TWICE A DAY;?
     Route: 048
     Dates: start: 20220503, end: 20220503

REACTIONS (3)
  - Malaise [None]
  - Product preparation error [None]
  - Accidental overdose [None]

NARRATIVE: CASE EVENT DATE: 20220503
